FAERS Safety Report 9636192 (Version 1)
Quarter: 2013Q4

REPORT INFORMATION
  Report Type: Report from Study
  Country: US (occurrence: US)
  Receive Date: 20131021
  Receipt Date: 20131021
  Transmission Date: 20140711
  Serious: Yes (Other)
  Sender: FDA-Public Use
  Company Number: US-ROCHE-1289568

PATIENT
  Age: 58 Year
  Sex: Female
  Weight: 56 kg

DRUGS (12)
  1. XELODA [Suspect]
     Indication: COLON CANCER
     Route: 048
     Dates: start: 20130916, end: 20130920
  2. 5-FU [Concomitant]
     Indication: COLON CANCER
     Dosage: CONTINIOUS PUMP
     Route: 042
     Dates: start: 20131007, end: 20131007
  3. IRINOTECAN [Concomitant]
     Indication: COLON CANCER
     Dosage: ONE TIME ONLY
     Route: 042
     Dates: start: 20130916, end: 20130916
  4. OXALIPLATIN [Concomitant]
     Indication: COLON CANCER
     Route: 042
     Dates: start: 20131007, end: 20131007
  5. LEUCOVORIN [Concomitant]
     Indication: COLON CANCER
     Route: 042
     Dates: start: 20131007, end: 20131007
  6. BIOTIN [Concomitant]
     Route: 048
  7. FISH OIL CONCENTRATE [Concomitant]
     Route: 048
  8. LOMOTIL (ATROPINE/DIPHENOXYLATE) [Concomitant]
     Dosage: 2.5-0.25 MG
     Route: 048
  9. ONDANSETRON [Concomitant]
     Dosage: DISPERSABLE LINGUAL
     Route: 065
  10. PROCHLORPERAZINE MALEATE [Concomitant]
     Indication: NAUSEA
     Dosage: PRN
     Route: 048
  11. VITAMIN B COMPLEX [Concomitant]
     Route: 048
  12. XOPENEX HFA [Concomitant]
     Dosage: Q4-6H
     Route: 065

REACTIONS (2)
  - Depression [Unknown]
  - Suicidal ideation [Unknown]
